FAERS Safety Report 10247322 (Version 1)
Quarter: 2014Q2

REPORT INFORMATION
  Report Type: Spontaneous
  Country: US (occurrence: US)
  Receive Date: 20140619
  Receipt Date: 20140619
  Transmission Date: 20141212
  Serious: No
  Sender: FDA-Public Use
  Company Number: US-PFIZER INC-2014168634

PATIENT
  Age: 74 Year
  Sex: Female
  Weight: 85.71 kg

DRUGS (3)
  1. LYRICA [Suspect]
     Indication: NEURALGIA
     Dosage: UNK, SINGLE
     Dates: start: 201406, end: 201406
  2. POTASSIUM [Concomitant]
     Dosage: UNK
  3. ATORVASTATIN [Concomitant]
     Dosage: 40 MG, DAILY

REACTIONS (2)
  - Diarrhoea [Recovered/Resolved]
  - Vomiting [Recovered/Resolved]
